FAERS Safety Report 13805559 (Version 1)
Quarter: 2017Q3

REPORT INFORMATION
  Report Type: Spontaneous
  Country: US (occurrence: US)
  Receive Date: 20170728
  Receipt Date: 20170728
  Transmission Date: 20171127
  Serious: Yes (Other)
  Sender: FDA-Public Use
  Company Number: None

PATIENT
  Age: 55 Year

DRUGS (2)
  1. RANITIDINE. [Concomitant]
     Active Substance: RANITIDINE
  2. LYRICA [Suspect]
     Active Substance: PREGABALIN
     Dosage: ?          QUANTITY:AKING?.. N I. .\.;?

REACTIONS (2)
  - Hyperhidrosis [None]
  - Feeling hot [None]

NARRATIVE: CASE EVENT DATE: 20170619
